FAERS Safety Report 6016244-1 (Version None)
Quarter: 2008Q4

REPORT INFORMATION
  Report Type: 
  Country: None (occurrence: None)
  Receive Date: 20081218
  Receipt Date: 20081211
  Transmission Date: 20090506
  Serious: Yes (Other)
  Sender: FDA-Public Use
  Company Number: OSCN-NO-0810L-0592

PATIENT
  Age: 71 Year
  Sex: Male

DRUGS (7)
  1. OMNISCAN [Suspect]
     Indication: PERIPHERAL ISCHAEMIA
     Dosage: 15 ML, SINGLE DOSE, I.V.
     Route: 042
     Dates: start: 20011211, end: 20011211
  2. MAGNEVIST [Concomitant]
  3. CALCIUM CARBONATE (CALTAN) [Concomitant]
  4. CEFDINIR (CEFZON) [Concomitant]
  5. AMPICILLIN SODIUM W/ SULBACTAM SODIUM (UNASYN S) [Concomitant]
  6. CEFTAZIDIME (MODACIN) [Concomitant]
  7. CEFOTAM HYDROCHLORIDE (PANSOPRIN) [Concomitant]

REACTIONS (7)
  - NEPHROGENIC SYSTEMIC FIBROSIS [None]
  - OEDEMA PERIPHERAL [None]
  - PLATELET COUNT DECREASED [None]
  - RED BLOOD CELL COUNT DECREASED [None]
  - RENAL ATROPHY [None]
  - RENAL FAILURE [None]
  - WHITE BLOOD CELL COUNT DECREASED [None]
